FAERS Safety Report 24768836 (Version 1)
Quarter: 2024Q4

REPORT INFORMATION
  Report Type: Report from Study
  Country: BE (occurrence: BE)
  Receive Date: 20241224
  Receipt Date: 20241224
  Transmission Date: 20250115
  Serious: Yes (Death)
  Sender: CSL BEHRING
  Company Number: BE-BEH-2024188618

PATIENT
  Age: 56 Year
  Sex: Male

DRUGS (1)
  1. HIZENTRA [Suspect]
     Active Substance: HUMAN IMMUNOGLOBULIN G
     Indication: Secondary immunodeficiency
     Dosage: 4 G (20ML) 3*/WEEK
     Route: 058
     Dates: start: 20240708

REACTIONS (1)
  - Death [Fatal]

NARRATIVE: CASE EVENT DATE: 20240727
